FAERS Safety Report 6523569-X (Version None)
Quarter: 2009Q4

REPORT INFORMATION
  Report Type: 
  Country: None (occurrence: None)
  Receive Date: 20091222
  Receipt Date: 20091207
  Transmission Date: 20100525
  Serious: Yes (Other)
  Sender: FDA-Public Use
  Company Number: PHHY2009JP52365

PATIENT
  Age: 73 Year
  Sex: Male

DRUGS (8)
  1. VISUDYNE [Suspect]
     Indication: MACULAR DEGENERATION
     Dosage: 10.2 MG DAILY IV
     Route: 042
     Dates: start: 20091124, end: 20091124
  2. MICARDIS [Concomitant]
  3. EBASTINE [Concomitant]
  4. ALLOZYM [Concomitant]
  5. CILOSTAZOL [Concomitant]
  6. VESICARE [Concomitant]
  7. LANSOPRAZOLE [Concomitant]
  8. DORNALIN [Concomitant]

REACTIONS (4)
  - ASTERIXIS [None]
  - CONVULSION [None]
  - DYSKINESIA [None]
  - MYOCLONUS [None]
